FAERS Safety Report 22525657 (Version 1)
Quarter: 2023Q2

REPORT INFORMATION
  Report Type: Spontaneous
  Country: GB (occurrence: GB)
  Receive Date: 20230606
  Receipt Date: 20230606
  Transmission Date: 20230722
  Serious: Yes (Other)
  Sender: FDA-Public Use
  Company Number: GB-MHRA-MED-202306032017476450-JNHQT

PATIENT
  Age: 5 Year
  Sex: Female

DRUGS (1)
  1. SINGULAIR [Suspect]
     Active Substance: MONTELUKAST SODIUM
     Indication: Adverse drug reaction
     Dosage: 4MG ONCE A NIGHT

REACTIONS (1)
  - Tourette^s disorder [Not Recovered/Not Resolved]
